FAERS Safety Report 8427155-6 (Version None)
Quarter: 2012Q2

REPORT INFORMATION
  Report Type: 
  Country: None (occurrence: None)
  Receive Date: 20120531
  Receipt Date: 20120515
  Transmission Date: 20120825
  Serious: Yes (Hospitalization, Other)
  Sender: FDA-Public Use
  Company Number: ACO_26277_2011

PATIENT
  Age: 56 Year
  Sex: Female
  Weight: 93 kg

DRUGS (15)
  1. TOPROL-XL [Concomitant]
  2. BONIVA [Concomitant]
  3. COPAXONE [Suspect]
     Dosage: 20 MG, QD, SUBCUTANEOUS
     Route: 058
     Dates: start: 20060201
  4. VYTORIN [Concomitant]
  5. MOTRIN [Concomitant]
  6. VITAMIN D [Concomitant]
  7. AMPYRA [Suspect]
     Indication: GAIT DISTURBANCE
     Dosage: 10 MG, BID, ORAL
     Route: 048
     Dates: end: 20110717
  8. QUINARETIC (HYDROCHLOROTHIAZIDE, QUINAPRIL HYDROCHLORIDE) [Concomitant]
  9. NEXIUM [Concomitant]
  10. CALCIUM + VITAMIN D (CALCIUM, COLECALCIFEROL) [Concomitant]
  11. MULTIVITAMIN [Concomitant]
  12. SIMVASTATIN [Concomitant]
  13. METOPROLOL SUCCINATE [Concomitant]
  14. CLONAZEPAM [Concomitant]
  15. OMEGA 3 (DOCOSAHEXAENOIC ACID, EICOSAPENTAENOIC ACID) [Concomitant]

REACTIONS (9)
  - LEUKOCYTOSIS [None]
  - CAROTID ARTERY ANEURYSM [None]
  - DYSPNOEA [None]
  - TRACHEAL DISORDER [None]
  - ANAPHYLACTIC SHOCK [None]
  - HYPERHIDROSIS [None]
  - CYANOSIS [None]
  - HYPOKALAEMIA [None]
  - NAUSEA [None]
